FAERS Safety Report 8192486 (Version 4)
Quarter: 2014Q1

REPORT INFORMATION
  Report Type: Spontaneous
  Country: US (occurrence: US)
  Receive Date: 20111020
  Receipt Date: 20140313
  Transmission Date: 20141002
  Serious: Yes (Other)
  Sender: FDA-Public Use
  Company Number: US-ASTRAZENECA-2011SE61271

PATIENT
  Age: 56 Year
  Sex: Male
  Weight: 81.6 kg

DRUGS (5)
  1. NEXIUM [Suspect]
     Indication: GASTROOESOPHAGEAL REFLUX DISEASE
     Route: 048
  2. TOPROL XL [Suspect]
     Indication: HYPERTENSION
     Route: 048
     Dates: end: 201401
  3. OTHER [Suspect]
     Indication: HYPERTENSION
     Dates: start: 2014
  4. ASPIRIN [Concomitant]
     Indication: CARDIAC DISORDER
     Dates: start: 2010
  5. VITAMIN MULTI CENTRUM [Concomitant]
     Indication: VITAMIN SUPPLEMENTATION
     Dosage: DAILY
     Route: 048

REACTIONS (8)
  - Upper limb fracture [Unknown]
  - Limb crushing injury [Unknown]
  - Hand fracture [Unknown]
  - Injury [Unknown]
  - Hypertension [Unknown]
  - Intentional drug misuse [Unknown]
  - Drug dose omission [Unknown]
  - Drug ineffective [Unknown]
